FAERS Safety Report 7081018-X (Version None)
Quarter: 2010Q4

REPORT INFORMATION
  Report Type: 
  Country: None (occurrence: None)
  Receive Date: 20101103
  Receipt Date: 20101101
  Transmission Date: 20110411
  Serious: Yes (Hospitalization)
  Sender: FDA-Public Use
  Company Number: IT-AMGEN-ITACT2010002758

PATIENT

DRUGS (8)
  1. PANITUMUMAB [Suspect]
     Indication: COLORECTAL CANCER METASTATIC
     Dosage: 510 MG, UNK
     Dates: start: 20100609
  2. IRINOTECAN HCL [Suspect]
     Dosage: 300 MG, UNK
     Dates: start: 20100609
  3. OXALIPLATIN [Suspect]
     Dosage: 170 UNK, UNK
     Dates: start: 20100609
  4. FLUOROURACIL [Suspect]
     Dosage: 6000 UNK, UNK
     Dates: start: 20100609
  5. LEUCOVORIN CALCIUM [Suspect]
     Dosage: 400 MG, UNK
     Dates: start: 20100609
  6. AMLODIPINE BESYLATE [Concomitant]
     Indication: HYPERTENSION
     Dosage: 5 MG, UNK
     Route: 048
     Dates: start: 20100303
  7. VALSARTAN [Concomitant]
     Indication: HYPERTENSION
     Dosage: 40 MG, UNK
     Route: 048
     Dates: start: 20100303
  8. INSULIN [Concomitant]
     Indication: TYPE 2 DIABETES MELLITUS
     Dosage: UNK
     Route: 058
     Dates: start: 20100303

REACTIONS (2)
  - DIARRHOEA [None]
  - FEBRILE NEUTROPENIA [None]
